FAERS Safety Report 17028678 (Version 2)
Quarter: 2019Q4

REPORT INFORMATION
  Report Type: Report from Study
  Country: US (occurrence: US)
  Receive Date: 20191113
  Receipt Date: 20191125
  Transmission Date: 20200122
  Serious: Yes (Death, Congenital Anomaly)
  Sender: FDA-Public Use
  Company Number: NVSC2019US034556

PATIENT
  Sex: Male
  Weight: 41.3 kg

DRUGS (1)
  1. TEGRETOL [Suspect]
     Active Substance: CARBAMAZEPINE
     Indication: SEIZURE
     Dosage: 4 DF, BID
     Route: 048

REACTIONS (2)
  - Pneumonia [Fatal]
  - Seizure [Fatal]
